FAERS Safety Report 25423976 (Version 3)
Quarter: 2025Q2

REPORT INFORMATION
  Report Type: Spontaneous
  Country: CN (occurrence: CN)
  Receive Date: 20250611
  Receipt Date: 20250622
  Transmission Date: 20250716
  Serious: Yes (Death, Other)
  Sender: JOHNSON AND JOHNSON
  Company Number: CN-JNJFOC-20250607766

PATIENT

DRUGS (1)
  1. DARZALEX [Suspect]
     Active Substance: DARATUMUMAB
     Indication: Product used for unknown indication
     Route: 042

REACTIONS (4)
  - Death [Fatal]
  - Drug ineffective [Unknown]
  - Adverse drug reaction [Unknown]
  - Drug intolerance [Unknown]
